FAERS Safety Report 7373159-4 (Version None)
Quarter: 2011Q1

REPORT INFORMATION
  Report Type: 
  Country: None (occurrence: None)
  Receive Date: 20110316
  Receipt Date: 20110307
  Transmission Date: 20110831
  Serious: Yes (Hospitalization, Disabling, Other)
  Sender: FDA-Public Use
  Company Number: 2010JP006583

PATIENT
  Age: 60 Year
  Sex: Female

DRUGS (11)
  1. PREDNISOLONE TAB [Suspect]
     Indication: DERMATOMYOSITIS
     Dosage: 5 MG, BID, ORAL
     Route: 048
     Dates: start: 20090101
  2. LUMIGAN [Concomitant]
  3. PROGRAF [Suspect]
     Indication: INTERSTITIAL LUNG DISEASE
     Dosage: 2.5 MG, BID, ORAL
     Route: 048
     Dates: start: 20090901, end: 20101001
  4. PROGRAF [Suspect]
     Indication: DERMATOMYOSITIS
     Dosage: 2.5 MG, BID, ORAL
     Route: 048
     Dates: start: 20090901, end: 20101001
  5. MIKELAN (CARTEOLOL HYDROCHLORIDE) [Concomitant]
  6. NOVOLOG [Concomitant]
  7. OMEPRAZOLE [Concomitant]
  8. MAGMITT (MAGNESIUM OXIDE) [Concomitant]
  9. BONALON (ALENDRONATE SODIUM) [Concomitant]
  10. BACTRIM [Concomitant]
  11. TRUSOPT [Concomitant]

REACTIONS (4)
  - PROGRESSIVE MULTIFOCAL LEUKOENCEPHALOPATHY [None]
  - DECREASED APPETITE [None]
  - NAUSEA [None]
  - OFF LABEL USE [None]
